FAERS Safety Report 4975810-2 (Version None)
Quarter: 2006Q2

REPORT INFORMATION
  Report Type: 
  Country: None (occurrence: None)
  Receive Date: 20060411
  Receipt Date: 20060323
  Transmission Date: 20061013
  Serious: Yes (Disabling, Other)
  Sender: FDA-Public Use
  Company Number: USA0510110385

PATIENT
  Age: 85 Year
  Sex: Female
  Weight: 74.4 kg

DRUGS (12)
  1. FORTEO [Suspect]
     Indication: OSTEOPOROSIS
     Dosage: SEE IMAGE
     Dates: end: 20060104
  2. FORTEO [Suspect]
     Indication: OSTEOPOROSIS
     Dosage: SEE IMAGE
     Dates: start: 20050104
  3. FORTEO PEN, 250MCG/ML (3ML) (FORTEO PEN 250MCG/ML (3ML)) PEN, DISPOSAB [Concomitant]
  4. FORTEO [Concomitant]
  5. SYNTHROID [Concomitant]
  6. ATENOLOL [Concomitant]
  7. HYDROCHLOROTHIAZIDE [Concomitant]
  8. RESERPINE [Concomitant]
  9. ASPIRIN [Concomitant]
  10. VITAMIN D [Concomitant]
  11. TEMAZEPAM [Concomitant]
  12. LIPITOR [Concomitant]

REACTIONS (16)
  - ASTHENIA [None]
  - BLOOD CALCIUM INCREASED [None]
  - DIFFICULTY IN WALKING [None]
  - DIZZINESS [None]
  - DYSKINESIA [None]
  - LABYRINTHITIS [None]
  - MUSCULAR WEAKNESS [None]
  - NAUSEA [None]
  - NYSTAGMUS [None]
  - OSTEITIS DEFORMANS [None]
  - OSTEOPENIA [None]
  - PAIN IN EXTREMITY [None]
  - POLLAKIURIA [None]
  - PROTEIN TOTAL INCREASED [None]
  - URINE ODOUR ABNORMAL [None]
  - WEIGHT INCREASED [None]
